FAERS Safety Report 25048225 (Version 2)
Quarter: 2025Q1

REPORT INFORMATION
  Report Type: Spontaneous
  Country: US (occurrence: US)
  Receive Date: 20250307
  Receipt Date: 20250314
  Transmission Date: 20250409
  Serious: No
  Sender: ROCHE
  Company Number: US-ROCHE-10000221617

PATIENT
  Age: 65 Year
  Sex: Female

DRUGS (3)
  1. ESBRIET [Suspect]
     Active Substance: PIRFENIDONE
     Indication: Idiopathic pulmonary fibrosis
     Route: 048
     Dates: start: 202409
  2. WINREVAIR [Concomitant]
     Active Substance: SOTATERCEPT-CSRK
     Route: 058
  3. TYVASO DPI [Concomitant]
     Active Substance: TREPROSTINIL

REACTIONS (3)
  - Dyspnoea exertional [Unknown]
  - Blood pressure measurement [Unknown]
  - Oxygen saturation decreased [Unknown]
